FAERS Safety Report 4929501-4 (Version None)
Quarter: 2006Q1

REPORT INFORMATION
  Report Type: 
  Country: None (occurrence: None)
  Receive Date: 20060224
  Receipt Date: 20060214
  Transmission Date: 20060701
  Serious: Yes (Hospitalization, Other)
  Sender: FDA-Public Use
  Company Number: 2004056046

PATIENT
  Age: 78 Year
  Sex: Female
  Weight: 89 kg

DRUGS (14)
  1. LIPITOR [Suspect]
     Indication: HYPERCHOLESTEROLAEMIA
     Dosage: 20 MG ORAL
     Route: 048
     Dates: start: 19970101, end: 20040801
  2. LANSOPRAZOLE [Concomitant]
  3. MONOPRIL [Concomitant]
  4. NORVASC [Concomitant]
  5. TRAMADOL HCL [Concomitant]
  6. PROGOUT (ALLOPURINOL) [Concomitant]
  7. LOVAN (FLUOXETINE HYDROCHLORIDE) [Concomitant]
  8. NATRILIX (INDAPAMIDE) [Concomitant]
  9. XANAX [Concomitant]
  10. SPIRACTIN (PIMECLONE HYDROCHLORIDE) [Concomitant]
  11. SULFASALAZINE [Concomitant]
  12. PROZAC [Concomitant]
  13. LASIX [Concomitant]
  14. ACETYLSALICYLIC ACID SRT [Concomitant]

REACTIONS (13)
  - BLOOD CALCIUM ABNORMAL [None]
  - BLOOD POTASSIUM ABNORMAL [None]
  - CARPAL TUNNEL SYNDROME [None]
  - COLITIS [None]
  - DEHYDRATION [None]
  - FALL [None]
  - GASTRIC DISORDER [None]
  - HIP FRACTURE [None]
  - NEUROPATHY PERIPHERAL [None]
  - OEDEMA PERIPHERAL [None]
  - OESOPHAGITIS [None]
  - OSTEOPOROSIS [None]
  - PARAESTHESIA [None]
